FAERS Safety Report 24042881 (Version 3)
Quarter: 2025Q2

REPORT INFORMATION
  Report Type: Spontaneous
  Country: NL (occurrence: NL)
  Receive Date: 20240702
  Receipt Date: 20250627
  Transmission Date: 20250717
  Serious: Yes (Hospitalization)
  Sender: SANDOZ
  Company Number: NL-GILEAD-2024-0677262

PATIENT
  Age: 49 Year
  Sex: Male
  Weight: 130 kg

DRUGS (19)
  1. BREXUCABTAGENE AUTOLEUCEL [Suspect]
     Active Substance: BREXUCABTAGENE AUTOLEUCEL
     Indication: Burkitt^s lymphoma
     Route: 042
     Dates: start: 20240613, end: 20240613
  2. CYCLOPHOSPHAMIDE [Suspect]
     Active Substance: CYCLOPHOSPHAMIDE
     Indication: Bone marrow conditioning regimen
     Route: 065
     Dates: start: 20240608, end: 20240608
  3. CYCLOPHOSPHAMIDE [Suspect]
     Active Substance: CYCLOPHOSPHAMIDE
     Route: 065
     Dates: start: 20240609, end: 20240609
  4. CYCLOPHOSPHAMIDE [Suspect]
     Active Substance: CYCLOPHOSPHAMIDE
     Route: 065
     Dates: start: 20240610, end: 20240610
  5. FLUDARABINE [Suspect]
     Active Substance: FLUDARABINE PHOSPHATE
     Indication: Bone marrow conditioning regimen
     Route: 065
     Dates: start: 20240608, end: 20240608
  6. FLUDARABINE [Suspect]
     Active Substance: FLUDARABINE PHOSPHATE
     Route: 065
     Dates: start: 20240609, end: 20240609
  7. FLUDARABINE [Suspect]
     Active Substance: FLUDARABINE PHOSPHATE
     Route: 065
     Dates: start: 20240610, end: 20240610
  8. MESNA [Suspect]
     Active Substance: MESNA
     Indication: Prophylaxis
     Route: 065
     Dates: start: 20240608, end: 20240608
  9. MESNA [Suspect]
     Active Substance: MESNA
     Route: 065
     Dates: start: 20240608, end: 20240608
  10. MESNA [Suspect]
     Active Substance: MESNA
     Route: 065
     Dates: start: 20240609, end: 20240609
  11. MESNA [Suspect]
     Active Substance: MESNA
     Route: 065
     Dates: start: 20240609, end: 20240609
  12. MESNA [Suspect]
     Active Substance: MESNA
     Route: 065
     Dates: start: 20240610, end: 20240610
  13. MESNA [Suspect]
     Active Substance: MESNA
     Route: 065
     Dates: start: 20240610, end: 20240610
  14. GEMCITABINE HYDROCHLORIDE\OXALIPLATIN\RITUXIMAB [Suspect]
     Active Substance: GEMCITABINE HYDROCHLORIDE\OXALIPLATIN\RITUXIMAB
     Indication: Burkitt^s lymphoma
     Route: 065
     Dates: start: 20240430, end: 20240514
  15. GEMCITABINE HYDROCHLORIDE\OXALIPLATIN\RITUXIMAB [Suspect]
     Active Substance: GEMCITABINE HYDROCHLORIDE\OXALIPLATIN\RITUXIMAB
     Route: 065
     Dates: start: 20240430, end: 20240514
  16. GEMCITABINE HYDROCHLORIDE\OXALIPLATIN\RITUXIMAB [Suspect]
     Active Substance: GEMCITABINE HYDROCHLORIDE\OXALIPLATIN\RITUXIMAB
     Route: 065
     Dates: start: 20240430, end: 20240514
  17. POLYETHYLENE GLYCOLS [Concomitant]
     Active Substance: POLYETHYLENE GLYCOLS
     Indication: Product used for unknown indication
     Route: 048
     Dates: start: 2024
  18. OLANZAPINE [Concomitant]
     Active Substance: OLANZAPINE
     Indication: Product used for unknown indication
     Route: 048
     Dates: start: 2024
  19. PANTOPRAZOLE SODIUM [Concomitant]
     Active Substance: PANTOPRAZOLE SODIUM
     Indication: Product used for unknown indication
     Dosage: 40,MG,DAILY
     Route: 048
     Dates: start: 2024

REACTIONS (1)
  - Immune effector cell-associated neurotoxicity syndrome [Unknown]

NARRATIVE: CASE EVENT DATE: 20240618
